FAERS Safety Report 16827347 (Version 1)
Quarter: 2019Q3

REPORT INFORMATION
  Report Type: Other
  Country: IT (occurrence: IT)
  Receive Date: 20190919
  Receipt Date: 20190919
  Transmission Date: 20191005
  Serious: Yes (Death)
  Sender: FDA-Public Use
  Company Number: IT-ALSI-201900378

PATIENT
  Age: 80 Year
  Sex: Female

DRUGS (5)
  1. OXYGEN. [Suspect]
     Active Substance: OXYGEN
     Indication: OFF LABEL USE
     Route: 024
  2. OXYGEN. [Suspect]
     Active Substance: OXYGEN
     Indication: BACK PAIN
     Route: 024
  3. BETAMETHASONE. [Concomitant]
     Active Substance: BETAMETHASONE
  4. LIDOCAINE HYDROCHLORIDE. [Concomitant]
     Active Substance: LIDOCAINE HYDROCHLORIDE
  5. OZONE [Suspect]
     Active Substance: OZONE
     Route: 024

REACTIONS (2)
  - Off label use [Not Recovered/Not Resolved]
  - Air embolism [Fatal]
